FAERS Safety Report 20074298 (Version 1)
Quarter: 2021Q4

REPORT INFORMATION
  Report Type: Spontaneous
  Country: US (occurrence: None)
  Receive Date: 20211115
  Receipt Date: 20211115
  Transmission Date: 20220304
  Serious: No
  Sender: FDA-Public Use
  Company Number: None

PATIENT
  Age: 63 Year
  Sex: Male
  Weight: 91.5 kg

DRUGS (7)
  1. MEKTOVI [Suspect]
     Active Substance: BINIMETINIB
     Indication: Skin cancer
     Dosage: FREQUENCY : TWICE A DAY;?
     Route: 048
     Dates: start: 20200717, end: 20211115
  2. BRAFTOVI [Suspect]
     Active Substance: ENCORAFENIB
     Indication: Skin cancer
     Dosage: FREQUENCY : DAILY;?
     Route: 048
     Dates: start: 20200717, end: 20211115
  3. VITAMIN C [Concomitant]
     Active Substance: ASCORBIC ACID
  4. liver caps [Concomitant]
  5. blood builder [Concomitant]
  6. VITAMIN B12 [Concomitant]
     Active Substance: CYANOCOBALAMIN
  7. NIACIN [Concomitant]
     Active Substance: NIACIN

REACTIONS (1)
  - Loss of therapeutic response [None]

NARRATIVE: CASE EVENT DATE: 20211115
